FAERS Safety Report 5536597-8 (Version None)
Quarter: 2007Q4

REPORT INFORMATION
  Report Type: 
  Country: None (occurrence: None)
  Receive Date: 20071206
  Receipt Date: 20070910
  Transmission Date: 20080405
  Serious: Yes (Other)
  Sender: FDA-Public Use
  Company Number: US-AMGEN-STX242701

PATIENT
  Sex: Female

DRUGS (3)
  1. ENBREL [Suspect]
     Indication: RHEUMATOID ARTHRITIS
     Route: 058
     Dates: start: 20010201
  2. METHOTREXATE [Concomitant]
     Route: 048
     Dates: start: 19980101
  3. PLAQUENIL [Concomitant]
     Route: 048
     Dates: start: 19980101

REACTIONS (3)
  - ASTHENIA [None]
  - CONVULSION [None]
  - RHEUMATOID ARTHRITIS [None]
